FAERS Safety Report 10363775 (Version 1)
Quarter: 2014Q3

REPORT INFORMATION
  Report Type: Spontaneous
  Country: US (occurrence: None)
  Receive Date: 20140801
  Receipt Date: 20140801
  Transmission Date: 20150326
  Serious: Yes (Hospitalization, Disabling)
  Sender: FDA-Public Use
  Company Number: 2014-002268

PATIENT
  Age: 30 Year
  Sex: Male
  Weight: 97.5 kg

DRUGS (2)
  1. PREDNISONE (PREDNISONE) [Suspect]
     Active Substance: PREDNISONE
     Indication: COLITIS ULCERATIVE
     Dosage: WAS TAPERED FROM A HIGHER DOSE TO A LOWER DOSE, ORAL
     Route: 048
     Dates: start: 2000, end: 2002
  2. ASACOL [Suspect]
     Active Substance: MESALAMINE
     Indication: COLITIS ULCERATIVE
     Route: 048
     Dates: start: 2000, end: 2002

REACTIONS (9)
  - Musculoskeletal discomfort [None]
  - Abdominal pain [None]
  - Weight decreased [None]
  - Osteonecrosis [None]
  - Colitis ulcerative [None]
  - Joint dislocation [None]
  - Haematochezia [None]
  - Abasia [None]
  - Arthralgia [None]

NARRATIVE: CASE EVENT DATE: 200012
